FAERS Safety Report 6370036-2 (Version None)
Quarter: 2009Q3

REPORT INFORMATION
  Report Type: 
  Country: None (occurrence: None)
  Receive Date: 20090923
  Receipt Date: 20070530
  Transmission Date: 20100115
  Serious: No
  Sender: FDA-Public Use
  Company Number: US-ASTRAZENECA-2006UW06956

PATIENT
  Age: 555 Month
  Sex: Female
  Weight: 98.9 kg

DRUGS (25)
  1. SEROQUEL [Suspect]
     Indication: BIPOLAR DISORDER
     Route: 048
     Dates: start: 20040901, end: 20050801
  2. SEROQUEL [Suspect]
     Dosage: 50-300 MG
     Route: 048
     Dates: start: 20040611
  3. ABILIFY [Concomitant]
     Dates: start: 20050101
  4. GEODON [Concomitant]
     Dates: start: 20060101
  5. WELLBUTRIN XL [Concomitant]
  6. EFFEXOR XR [Concomitant]
  7. XANAX [Concomitant]
  8. TRAZODONE [Concomitant]
  9. AMBIEN [Concomitant]
  10. RISPERDAL [Concomitant]
  11. COGENTIN [Concomitant]
  12. TIZANIDINE HCL [Concomitant]
  13. LUNESTA [Concomitant]
  14. ACETAMINOPHEN AND CODEINE PHOSPHATE [Concomitant]
  15. OXYCODONE HCL AND ACETAMINOPHEN [Concomitant]
  16. NITROGLYCERIN [Concomitant]
  17. ALTACE [Concomitant]
  18. TRAMADOL HCL [Concomitant]
  19. CYCLOBENZAPRINE [Concomitant]
  20. DICYCLOMINE [Concomitant]
  21. CELEBREX [Concomitant]
  22. ULTRACET [Concomitant]
  23. ARTHROTEC [Concomitant]
  24. SKELAXIN [Concomitant]
  25. ESTAZOLAM [Concomitant]

REACTIONS (24)
  - ABDOMINAL PAIN [None]
  - ANAL FISSURE [None]
  - ANGINA PECTORIS [None]
  - AORTIC VALVE INCOMPETENCE [None]
  - ARTHRALGIA [None]
  - AVULSION FRACTURE [None]
  - DENTAL CARIES [None]
  - DIABETES MELLITUS [None]
  - DYSPNOEA PAROXYSMAL NOCTURNAL [None]
  - FRACTURE [None]
  - GINGIVITIS [None]
  - HYPERCHOLESTEROLAEMIA [None]
  - INGROWING NAIL [None]
  - MYOSITIS [None]
  - NECK PAIN [None]
  - ONYCHOMYCOSIS [None]
  - ORTHOPNOEA [None]
  - OSTEITIS [None]
  - OSTEOARTHRITIS [None]
  - PELVIC PAIN [None]
  - PROCTALGIA [None]
  - RECTAL HAEMORRHAGE [None]
  - TOOTHACHE [None]
  - WEIGHT INCREASED [None]
